FAERS Safety Report 12440160 (Version 1)
Quarter: 2016Q2

REPORT INFORMATION
  Report Type: Spontaneous
  Country: US (occurrence: US)
  Receive Date: 20160606
  Receipt Date: 20160606
  Transmission Date: 20160815
  Serious: No
  Sender: FDA-Public Use
  Company Number: US-AMGEN-USASP2015083644

PATIENT
  Age: 77 Year
  Sex: Male
  Weight: 77.98 kg

DRUGS (2)
  1. PROCRIT [Suspect]
     Active Substance: ERYTHROPOIETIN
     Indication: ANAEMIA
     Dosage: 10000 UNIT, EVERY COUPLE OF MONTHS
     Route: 058
     Dates: start: 2010, end: 2015
  2. PROCRIT [Suspect]
     Active Substance: ERYTHROPOIETIN
     Dosage: 10000 UNIT, 1 TO 2 TIMES A MONTH
     Route: 058
     Dates: start: 2015

REACTIONS (3)
  - Haematocrit decreased [Unknown]
  - Device malfunction [Unknown]
  - Haemoglobin decreased [Unknown]

NARRATIVE: CASE EVENT DATE: 201108
